FAERS Safety Report 6072094-1 (Version None)
Quarter: 2009Q1

REPORT INFORMATION
  Report Type: 
  Country: None (occurrence: None)
  Receive Date: 20090210
  Receipt Date: 20090209
  Transmission Date: 20090719
  Serious: Yes (Other)
  Sender: FDA-Public Use
  Company Number: A0767255A

PATIENT

DRUGS (1)
  1. COMMIT [Suspect]
     Route: 002

REACTIONS (4)
  - LIP AND/OR ORAL CAVITY CANCER [None]
  - ORAL MUCOSAL DISCOLOURATION [None]
  - ORAL MUCOSAL HYPERTROPHY [None]
  - SQUAMOUS CELL CARCINOMA [None]
